FAERS Safety Report 20086863 (Version 2)
Quarter: 2021Q4

REPORT INFORMATION
  Report Type: Spontaneous
  Country: US (occurrence: US)
  Receive Date: 20211118
  Receipt Date: 20211224
  Transmission Date: 20220303
  Serious: No
  Sender: FDA-Public Use
  Company Number: US-CELGENE-USA-20211103451

PATIENT
  Age: 69 Year
  Sex: Female
  Weight: 84.898 kg

DRUGS (1)
  1. REVLIMID [Suspect]
     Active Substance: LENALIDOMIDE
     Indication: Plasma cell myeloma
     Dosage: 20 MILLIGRAM
     Route: 048
     Dates: start: 20210924

REACTIONS (7)
  - Palpitations [Unknown]
  - Hot flush [Unknown]
  - Diarrhoea [Unknown]
  - Night sweats [Unknown]
  - Wound [Unknown]
  - Psychomotor hyperactivity [Unknown]
  - Insomnia [Unknown]

NARRATIVE: CASE EVENT DATE: 20211008
